FAERS Safety Report 22019685 (Version 5)
Quarter: 2023Q4

REPORT INFORMATION
  Report Type: Report from Study
  Country: JP (occurrence: JP)
  Receive Date: 20230222
  Receipt Date: 20231110
  Transmission Date: 20240109
  Serious: Yes (Death, Hospitalization)
  Sender: FDA-Public Use
  Company Number: JP-ARGENX-2022-ARGX-JP001201

PATIENT
  Age: 46 Year
  Sex: Female
  Weight: 58 kg

DRUGS (23)
  1. VYVGART [Suspect]
     Active Substance: EFGARTIGIMOD ALFA-FCAB
     Indication: Myasthenia gravis
     Dosage: 700 MG, 1/WEEK
     Route: 041
     Dates: start: 20220511, end: 20220601
  2. VYVGART [Suspect]
     Active Substance: EFGARTIGIMOD ALFA-FCAB
     Dosage: 700 MG, 1/WEEK
     Route: 041
     Dates: start: 20220720, end: 20220727
  3. VYVGART [Suspect]
     Active Substance: EFGARTIGIMOD ALFA-FCAB
     Dosage: 700 MG
     Route: 041
     Dates: start: 20220824, end: 20220824
  4. VYVGART [Suspect]
     Active Substance: EFGARTIGIMOD ALFA-FCAB
     Dosage: 640 MG, 1/WEEK
     Route: 041
     Dates: start: 20221005, end: 20221026
  5. VYVGART [Suspect]
     Active Substance: EFGARTIGIMOD ALFA-FCAB
     Dosage: 2 DF
     Route: 041
     Dates: start: 20230210, end: 20230217
  6. VYVGART [Suspect]
     Active Substance: EFGARTIGIMOD ALFA-FCAB
     Dosage: 580 MG
     Route: 041
     Dates: start: 20230221, end: 20230228
  7. VYVGART [Suspect]
     Active Substance: EFGARTIGIMOD ALFA-FCAB
     Dosage: 580 MG
     Route: 041
     Dates: start: 20230323, end: 20230413
  8. VYVGART [Suspect]
     Active Substance: EFGARTIGIMOD ALFA-FCAB
     Dosage: 2 VIALS
     Route: 041
     Dates: end: 20230606
  9. NEORAL [Concomitant]
     Active Substance: CYCLOSPORINE
     Indication: Myasthenia gravis
     Dosage: 2 DF, DAILY, AFTER BREAKFAST
     Route: 048
     Dates: start: 2010
  10. NEORAL [Concomitant]
     Active Substance: CYCLOSPORINE
     Dosage: 1 DF, DAILY, AFTER DINNER
     Route: 048
     Dates: start: 2010
  11. NEORAL [Concomitant]
     Active Substance: CYCLOSPORINE
     Dosage: UNK
  12. PREDONINE [Concomitant]
     Active Substance: PREDNISOLONE
     Indication: Myasthenia gravis
     Dosage: 1 DF, DAILY, AFTER BREAKFAST
     Route: 048
     Dates: start: 2010
  13. FAMOTIDINE [Concomitant]
     Active Substance: FAMOTIDINE
     Indication: Prophylaxis
     Dosage: 1 DF, DAILY, AFTER BREAKFAST
     Route: 048
     Dates: start: 2010
  14. AMLODIPINE BESYLATE\IRBESARTAN [Concomitant]
     Active Substance: AMLODIPINE BESYLATE\IRBESARTAN
     Indication: Product used for unknown indication
     Dosage: 1 DF, DAILY, AFTER DINNER
     Route: 048
     Dates: start: 2010, end: 202212
  15. FUROSEMIDE [Concomitant]
     Active Substance: FUROSEMIDE
     Indication: Product used for unknown indication
     Dosage: 1 DF, BID, AFTER BREAKFAST/DINNER
     Route: 048
     Dates: start: 2010, end: 202212
  16. FEBUXOSTAT [Concomitant]
     Active Substance: FEBUXOSTAT
     Indication: Product used for unknown indication
     Dosage: 1 DF, DAILY, AFTER BREAKFAST
     Route: 048
     Dates: start: 2010, end: 202212
  17. DAYVIGO [Concomitant]
     Active Substance: LEMBOREXANT
     Indication: Product used for unknown indication
     Dosage: 1 DF, DAILY, AT BEDTIME
     Route: 048
     Dates: start: 2010
  18. MINODRONIC ACID [Concomitant]
     Active Substance: MINODRONIC ACID
     Indication: Prophylaxis
     Dosage: 1 DF, Q4WEEKS, AT WAKE-UP
     Route: 048
     Dates: start: 2010
  19. NAPHAZOLINE NITRATE [Concomitant]
     Active Substance: NAPHAZOLINE NITRATE
     Indication: Myasthenia gravis
     Dosage: 5 ML, PRN
     Route: 047
     Dates: start: 2010
  20. ZOLPIDEM TARTRATE [Concomitant]
     Active Substance: ZOLPIDEM TARTRATE
     Indication: Product used for unknown indication
     Dosage: 2 DF, DAILY, AT BEDTIME
     Route: 048
     Dates: start: 2010
  21. LOXOPROFEN SODIUM DIHYDRATE [Concomitant]
     Active Substance: LOXOPROFEN SODIUM DIHYDRATE
     Indication: Back pain
     Dosage: 1 DF, PRN
     Route: 048
     Dates: start: 2010
  22. TANDOSPIRONE CITRATE [Concomitant]
     Active Substance: TANDOSPIRONE CITRATE
     Indication: Product used for unknown indication
     Dosage: 1 DF, TID, AFTER BREAKFAST/LUNCH/DINNER
     Route: 048
     Dates: start: 2015
  23. VALPROATE SODIUM [Concomitant]
     Active Substance: VALPROATE SODIUM
     Indication: Product used for unknown indication
     Dosage: 2 DF, BID, AFTER BREAKFAST/DINNER
     Route: 048
     Dates: start: 2015

REACTIONS (8)
  - Renal failure [Fatal]
  - Symptom recurrence [Not Recovered/Not Resolved]
  - Faeces soft [Recovered/Resolved]
  - Therapeutic product effect increased [Unknown]
  - Inappropriate schedule of product administration [Unknown]
  - Intentional dose omission [Unknown]
  - Intentional underdose [Unknown]
  - Therapeutic product effect incomplete [Unknown]

NARRATIVE: CASE EVENT DATE: 20220517
